FAERS Safety Report 10018257 (Version 1)
Quarter: 2014Q1

REPORT INFORMATION
  Report Type: Spontaneous
  Country: US (occurrence: US)
  Receive Date: 20140318
  Receipt Date: 20140318
  Transmission Date: 20141002
  Serious: Yes (Other)
  Sender: FDA-Public Use
  Company Number: US-BRISTOL-MYERS SQUIBB COMPANY-19729888

PATIENT
  Sex: Male

DRUGS (8)
  1. ERBITUX [Suspect]
  2. ALOXI [Concomitant]
  3. DECADRON [Concomitant]
  4. EMEND [Concomitant]
  5. TYLENOL [Concomitant]
  6. CISPLATIN [Concomitant]
  7. NORMAL SALINE [Concomitant]
  8. BENADRYL [Concomitant]

REACTIONS (1)
  - Infusion related reaction [Recovering/Resolving]
